FAERS Safety Report 6505490-6 (Version None)
Quarter: 2009Q4

REPORT INFORMATION
  Report Type: 
  Country: None (occurrence: None)
  Receive Date: 20091218
  Receipt Date: 20091209
  Transmission Date: 20100525
  Serious: Yes (Death, Hospitalization)
  Sender: FDA-Public Use
  Company Number: SE-PFIZER INC-2009307622

PATIENT
  Age: 84 Year
  Sex: Female

DRUGS (5)
  1. FRAGMIN [Suspect]
     Indication: THROMBOSIS PROPHYLAXIS
     Dosage: 5000 IU, 1X/DAY
     Route: 058
     Dates: start: 20091020, end: 20091023
  2. TROMBYL [Suspect]
     Dosage: 75 MG, 1X/DAY
     Route: 048
     Dates: start: 20091020, end: 20091026
  3. SIMVASTATIN [Suspect]
     Indication: HYPERLIPIDAEMIA
     Dosage: 10 MG, 1X/DAY
     Dates: start: 20091023, end: 20091026
  4. SIMVASTATIN [Suspect]
     Indication: HYPERTRIGLYCERIDAEMIA
  5. CITALOPRAM [Suspect]
     Indication: DEPRESSION
     Dosage: 10 MG, 1X/DAY
     Dates: start: 20091020, end: 20091026

REACTIONS (3)
  - EPISTAXIS [None]
  - GASTROINTESTINAL HAEMORRHAGE [None]
  - THROMBOCYTOPENIA [None]
